FAERS Safety Report 5808449-7 (Version None)
Quarter: 2008Q3

REPORT INFORMATION
  Report Type: 
  Country: None (occurrence: None)
  Receive Date: 20080714
  Receipt Date: 20080702
  Transmission Date: 20090109
  Serious: Yes (Other)
  Sender: FDA-Public Use
  Company Number: US-JNJFOC-20080701719

PATIENT
  Sex: Female

DRUGS (7)
  1. IBUPROFEN TABLETS [Suspect]
  2. IBUPROFEN TABLETS [Suspect]
  3. IBUPROFEN TABLETS [Suspect]
  4. IBUPROFEN TABLETS [Suspect]
  5. IBUPROFEN TABLETS [Suspect]
     Indication: ARTHRITIS
  6. IBUPROFEN [Suspect]
  7. IBUPROFEN [Suspect]
     Indication: ARTHRITIS

REACTIONS (8)
  - CEREBROVASCULAR ACCIDENT [None]
  - DRUG EXPOSURE DURING PREGNANCY [None]
  - HYPERTENSION [None]
  - MENTAL IMPAIRMENT [None]
  - NAUSEA [None]
  - OVERDOSE [None]
  - PREGNANCY [None]
  - STOMACH DISCOMFORT [None]
